FAERS Safety Report 5665754-5 (Version None)
Quarter: 2008Q1

REPORT INFORMATION
  Report Type: 
  Country: None (occurrence: None)
  Receive Date: 20080314
  Receipt Date: 20080226
  Transmission Date: 20080703
  Serious: No
  Sender: FDA-Public Use
  Company Number: US-ABBOTT-07P-163-0429299-00

PATIENT
  Sex: Female
  Weight: 106.69 kg

DRUGS (3)
  1. HUMIRA [Suspect]
     Indication: RHEUMATOID ARTHRITIS
     Route: 058
     Dates: start: 20060101, end: 20070401
  2. HUMIRA [Suspect]
     Dates: start: 20070501, end: 20080101
  3. HUMIRA [Suspect]
     Dates: start: 20080201

REACTIONS (1)
  - BRONCHITIS [None]
